FAERS Safety Report 7701486-7 (Version None)
Quarter: 2011Q3

REPORT INFORMATION
  Report Type: 
  Country: None (occurrence: None)
  Receive Date: 20110822
  Receipt Date: 20110817
  Transmission Date: 20111222
  Serious: Yes (Hospitalization)
  Sender: FDA-Public Use
  Company Number: US-MERCK-1105USA04232

PATIENT

DRUGS (1)
  1. ISENTRESS [Suspect]
     Route: 048

REACTIONS (2)
  - MENTAL DISORDER [None]
  - DRUG ADMINISTRATION ERROR [None]
